FAERS Safety Report 16597906 (Version 3)
Quarter: 2020Q1

REPORT INFORMATION
  Report Type: Spontaneous
  Country: US (occurrence: US)
  Receive Date: 20190719
  Receipt Date: 20200108
  Transmission Date: 20200409
  Serious: No
  Sender: FDA-Public Use
  Company Number: US-PFIZER INC-2019306113

PATIENT
  Age: 45 Year
  Sex: Female

DRUGS (1)
  1. XELJANZ [Suspect]
     Active Substance: TOFACITINIB CITRATE
     Dosage: 5 MG, UNK, (X60)
     Dates: start: 20190307, end: 20200103

REACTIONS (2)
  - Foot deformity [Unknown]
  - Rash [Unknown]

NARRATIVE: CASE EVENT DATE: 201907
